FAERS Safety Report 8387250-7 (Version None)
Quarter: 2012Q2

REPORT INFORMATION
  Report Type: 
  Country: None (occurrence: None)
  Receive Date: 20120525
  Receipt Date: 20120517
  Transmission Date: 20120825
  Serious: Yes (Other)
  Sender: FDA-Public Use
  Company Number: JP-VERTEX PHARMACEUTICALS INC.-AE-2012-007589

PATIENT
  Age: 72 Year
  Sex: Female

DRUGS (11)
  1. TELAVIC (TELAPREVIR) [Suspect]
     Indication: HEPATITIS C
     Route: 048
     Dates: start: 20120316, end: 20120321
  2. REBETOL [Concomitant]
     Route: 048
     Dates: start: 20120501
  3. REBETOL [Concomitant]
     Route: 048
     Dates: start: 20120316, end: 20120406
  4. ZETIA [Concomitant]
     Route: 048
  5. INDAPAMIDE [Concomitant]
     Route: 048
  6. PRAVASTATIN SODIUM [Concomitant]
     Route: 048
  7. PEG-INTRON [Concomitant]
     Route: 051
     Dates: start: 20120316
  8. CARVEDILOL [Concomitant]
     Route: 048
  9. ASPIRIN [Concomitant]
     Route: 048
  10. MICARDIS [Concomitant]
     Route: 048
  11. WARFARIN SODIUM [Concomitant]
     Route: 048

REACTIONS (2)
  - RENAL DISORDER [None]
  - NAUSEA [None]
